FAERS Safety Report 9127101 (Version 1)
Quarter: 2013Q1

REPORT INFORMATION
  Report Type: Spontaneous
  Country: VE (occurrence: VE)
  Receive Date: 20130228
  Receipt Date: 20130228
  Transmission Date: 20140127
  Serious: Yes (Hospitalization)
  Sender: FDA-Public Use
  Company Number: PHHY2011VE56853

PATIENT
  Age: 66 Year
  Sex: Female

DRUGS (8)
  1. ACLASTA [Suspect]
     Indication: OSTEOPOROSIS
     Dosage: 5 MG, YEARLY
     Route: 042
     Dates: start: 201007
  2. ACLASTA [Suspect]
     Dosage: 5 MG, YEARLY
     Route: 042
     Dates: start: 201105
  3. MAXERAN [Concomitant]
     Dosage: UNK UKN, UNK
  4. METHOTREXATE [Concomitant]
  5. PRANEX [Concomitant]
     Indication: BONE PAIN
     Dosage: 90 MG, UNK
     Route: 048
  6. FOLIC ACID [Concomitant]
     Dosage: UNK UKN, UNK
  7. HYZAAR [Concomitant]
     Indication: HYPERTENSION
     Dosage: 50 MG, QD
     Route: 048
  8. DEFLAZACORT [Concomitant]
     Dosage: UNK UKN, UNK

REACTIONS (3)
  - Bone disorder [Recovered/Resolved]
  - Influenza [Unknown]
  - Malaise [Recovered/Resolved]
